FAERS Safety Report 16284059 (Version 1)
Quarter: 2019Q2

REPORT INFORMATION
  Report Type: Report from Study
  Country: CA (occurrence: CA)
  Receive Date: 20190507
  Receipt Date: 20190507
  Transmission Date: 20190711
  Serious: Yes (Hospitalization, Other)
  Sender: FDA-Public Use
  Company Number: PHHY2017CA136777

PATIENT
  Age: 83 Year
  Sex: Male

DRUGS (2)
  1. SANDOSTATIN LAR DEPOT [Suspect]
     Active Substance: OCTREOTIDE ACETATE
     Indication: ANGIODYSPLASIA
     Dosage: 10 MG, QMO
     Route: 030
     Dates: start: 20101221
  2. SANDOSTATIN [Suspect]
     Active Substance: OCTREOTIDE ACETATE
     Indication: ANGIODYSPLASIA
     Dosage: UNK
     Route: 058
     Dates: start: 201011

REACTIONS (7)
  - Rash [Unknown]
  - Dyspnoea [Unknown]
  - Inguinal hernia [Unknown]
  - Lung neoplasm malignant [Unknown]
  - Herpes zoster [Unknown]
  - Product use in unapproved indication [Unknown]
  - Viral infection [Unknown]

NARRATIVE: CASE EVENT DATE: 20190415
